FAERS Safety Report 14525097 (Version 1)
Quarter: 2018Q1

REPORT INFORMATION
  Report Type: Spontaneous
  Country: US (occurrence: US)
  Receive Date: 20180213
  Receipt Date: 20180213
  Transmission Date: 20180509
  Serious: Yes (Hospitalization, Other)
  Sender: FDA-Public Use
  Company Number: PHEH2018US004726

PATIENT
  Age: 56 Year
  Sex: Female

DRUGS (4)
  1. FENTANYL. [Concomitant]
     Active Substance: FENTANYL
     Indication: PRODUCT USED FOR UNKNOWN INDICATION
     Route: 065
  2. GRANIX [Concomitant]
     Active Substance: TBO-FILGRASTIM
     Indication: PRODUCT USED FOR UNKNOWN INDICATION
     Route: 065
  3. LETROZOLE. [Suspect]
     Active Substance: LETROZOLE
     Indication: BREAST CANCER
     Route: 065
  4. IBRANCE [Suspect]
     Active Substance: PALBOCICLIB
     Indication: BREAST CANCER
     Dosage: 125 MG, QD FOR 21 DAYS, OFF 7 DAYS
     Route: 048
     Dates: start: 20171101, end: 20180108

REACTIONS (15)
  - Fatigue [Unknown]
  - Vomiting [Unknown]
  - Nausea [Unknown]
  - White blood cell count decreased [Unknown]
  - Metastases to liver [Unknown]
  - Metastases to bone [Unknown]
  - Neutropenia [Unknown]
  - Pancytopenia [Recovered/Resolved]
  - Malignant neoplasm progression [Unknown]
  - Chest pain [Unknown]
  - Sepsis [Recovered/Resolved]
  - Bone marrow infiltration [Unknown]
  - Breast cancer [Unknown]
  - Musculoskeletal pain [Unknown]
  - Urinary tract infection [Unknown]

NARRATIVE: CASE EVENT DATE: 20171228
